FAERS Safety Report 7600222-2 (Version None)
Quarter: 2011Q3

REPORT INFORMATION
  Report Type: 
  Country: None (occurrence: None)
  Receive Date: 20110711
  Receipt Date: 20110706
  Transmission Date: 20111222
  Serious: Yes (Life-Threatening, Hospitalization)
  Sender: FDA-Public Use
  Company Number: PHHY2011US56394

PATIENT
  Sex: Male
  Weight: 83.447 kg

DRUGS (6)
  1. BUPROPION HCL [Concomitant]
     Dosage: 300 MG, UNK
  2. TEKTURNA [Suspect]
     Indication: HYPERTENSION
     Dosage: 150 MG, BID
     Dates: start: 20110502, end: 20110512
  3. ACIPHEX [Concomitant]
     Dosage: 20 MG, UNK
  4. LESCOL [Concomitant]
     Dosage: 80 MG, UNK
     Route: 048
  5. KLONOPIN [Concomitant]
     Dosage: 0.5 MG, UNK
  6. LEVOTHYROXINE SODIUM [Concomitant]
     Dosage: 0.125 MG, UNK

REACTIONS (8)
  - HYPONATRAEMIA [None]
  - SWELLING FACE [None]
  - INAPPROPRIATE ANTIDIURETIC HORMONE SECRETION [None]
  - HEADACHE [None]
  - ASTHENIA [None]
  - CHEST DISCOMFORT [None]
  - MALAISE [None]
  - FEELING ABNORMAL [None]
